FAERS Safety Report 13759486 (Version 1)
Quarter: 2017Q3

REPORT INFORMATION
  Report Type: Spontaneous
  Country: BR (occurrence: BR)
  Receive Date: 20170717
  Receipt Date: 20170717
  Transmission Date: 20171127
  Serious: Yes (Other)
  Sender: FDA-Public Use
  Company Number: BR-PFIZER INC-2017302308

PATIENT

DRUGS (1)
  1. ECALTA [Suspect]
     Active Substance: ANIDULAFUNGIN
     Dosage: 100 MG, 1X/DAY

REACTIONS (1)
  - Pancreatitis [Recovering/Resolving]
